FAERS Safety Report 4318186-6 (Version None)
Quarter: 2004Q1

REPORT INFORMATION
  Report Type: 
  Country: None (occurrence: None)
  Receive Date: 20040315
  Receipt Date: 20040302
  Transmission Date: 20041129
  Serious: Yes (Death)
  Sender: FDA-Public Use
  Company Number: US-JNJFOC-20040300817

PATIENT
  Age: 35 Year
  Sex: Female
  Weight: 113.3993 kg

DRUGS (4)
  1. DURAGESIC [Suspect]
     Indication: PAIN
     Dosage: 1 IN 72 HOUR, TRANSDERMAL
     Route: 062
     Dates: start: 20040106, end: 20040110
  2. VALIUM [Concomitant]
  3. ANTIDEPRESSANT (ANTIDEPRESSANTS) [Concomitant]
  4. ANTI-SEIZURE MEDICATION (ANTIEPILEPTICS) [Concomitant]

REACTIONS (1)
  - ACCIDENTAL OVERDOSE [None]
